FAERS Safety Report 6771134-1 (Version None)
Quarter: 2010Q2

REPORT INFORMATION
  Report Type: 
  Country: None (occurrence: None)
  Receive Date: 20100614
  Receipt Date: 20100614
  Transmission Date: 20101027
  Serious: No
  Sender: FDA-Public Use
  Company Number: None

PATIENT

DRUGS (5)
  1. CRESTOR [Suspect]
  2. LISINOPRIL TABS [Concomitant]
  3. LEVOTHYROXINE SODIUM [Concomitant]
  4. NIASPAN [Concomitant]
  5. FLOMAX [Concomitant]

REACTIONS (5)
  - CONSTIPATION [None]
  - DEPRESSION [None]
  - DRY MOUTH [None]
  - DRY SKIN [None]
  - INSOMNIA [None]
